FAERS Safety Report 7508942-5 (Version None)
Quarter: 2011Q2

REPORT INFORMATION
  Report Type: 
  Country: None (occurrence: None)
  Receive Date: 20110527
  Receipt Date: 20110513
  Transmission Date: 20111010
  Serious: Yes (Other)
  Sender: FDA-Public Use
  Company Number: DE-MYLANLABS-2011S1009909

PATIENT
  Sex: Female
  Weight: 60 kg

DRUGS (7)
  1. LEVOTHYROXINE SODIUM [Concomitant]
     Indication: HYPOTHYROIDISM
     Dosage: 100 [UG/D ]
     Route: 048
     Dates: start: 20100301, end: 20101026
  2. AFLURIA [Suspect]
     Indication: IMMUNISATION
     Route: 030
     Dates: start: 20100928, end: 20100928
  3. FOLIO [Concomitant]
     Indication: PROPHYLAXIS OF NEURAL TUBE DEFECT
     Dosage: 0.4 [MG/D ]
     Route: 048
     Dates: start: 20100301, end: 20101026
  4. AZATHIOPRINE [Suspect]
     Indication: CROHN'S DISEASE
     Dosage: 100 [MG/D ]
     Route: 048
     Dates: start: 20100301, end: 20101026
  5. NIFEDIPINE [Concomitant]
     Indication: TOCOLYSIS
     Route: 048
     Dates: start: 20101014
  6. SALOFALK /00747601/ [Concomitant]
     Indication: CROHN'S DISEASE
     Dosage: 2000 [MG /2 TAGE ]
     Route: 054
     Dates: start: 20100301, end: 20101026
  7. MESALAMINE [Concomitant]
     Indication: CROHN'S DISEASE
     Route: 048
     Dates: start: 20100301, end: 20101026

REACTIONS (2)
  - ANTEPARTUM HAEMORRHAGE [None]
  - DRUG EXPOSURE DURING PREGNANCY [None]
